FAERS Safety Report 22100569 (Version 1)
Quarter: 2023Q1

REPORT INFORMATION
  Report Type: Spontaneous
  Country: JP (occurrence: None)
  Receive Date: 20230316
  Receipt Date: 20230316
  Transmission Date: 20230418
  Serious: Yes (Other)
  Sender: FDA-Public Use
  Company Number: 2023A058293

PATIENT
  Age: 70 Year
  Sex: Male

DRUGS (6)
  1. IMFINZI [Suspect]
     Active Substance: DURVALUMAB
     Indication: Small cell lung cancer
     Dosage: EVERY THREE WEEKS, EXACT DOSE UNKNOWN
     Route: 041
     Dates: start: 202204, end: 2022
  2. IMFINZI [Suspect]
     Active Substance: DURVALUMAB
     Indication: Small cell lung cancer
     Dosage: EVERY FOUR WEEKS, EXACT DOSE IS UNKNOWN
     Route: 041
     Dates: start: 2022
  3. IMFINZI [Suspect]
     Active Substance: DURVALUMAB
     Indication: Drug therapy
     Dosage: EVERY FOUR WEEKS, EXACT DOSE IS UNKNOWN
     Route: 041
     Dates: start: 2022
  4. CISPLATIN [Concomitant]
     Active Substance: CISPLATIN
     Indication: Small cell lung cancer
     Dosage: EVERY THREE WEEKS
     Route: 065
     Dates: start: 202204, end: 2022
  5. ETOPOSIDE [Concomitant]
     Active Substance: ETOPOSIDE
     Indication: Small cell lung cancer
     Dosage: DOSE UNKNOWN, ON DAY 1, 2 AND 3 OF EACH CYCLE
     Route: 065
     Dates: start: 202204, end: 2022
  6. CARBOPLATIN [Concomitant]
     Active Substance: CARBOPLATIN
     Indication: Small cell lung cancer
     Dosage: EVERY THREE WEEKS, 4 COURSES
     Dates: start: 2022, end: 2022

REACTIONS (2)
  - Malignant neoplasm progression [Recovering/Resolving]
  - Gastrin-releasing peptide precursor increased [Recovering/Resolving]

NARRATIVE: CASE EVENT DATE: 20220101
